FAERS Safety Report 4363375-8 (Version None)
Quarter: 2004Q2

REPORT INFORMATION
  Report Type: 
  Country: None (occurrence: None)
  Receive Date: 20040518
  Receipt Date: 20040511
  Transmission Date: 20050107
  Serious: Yes (Other)
  Sender: FDA-Public Use
  Company Number: 2002139030DE

PATIENT
  Sex: Male
  Weight: 1.7 kg

DRUGS (1)
  1. FRAGMIN [Suspect]
     Indication: THROMBOSIS PROPHYLAXIS
     Dosage: 5000 IU, QD
     Dates: start: 20021214, end: 20021215

REACTIONS (7)
  - ABDOMINAL PAIN UPPER [None]
  - ANTEPARTUM HAEMORRHAGE [None]
  - BRADYCARDIA [None]
  - CAESAREAN SECTION [None]
  - DRUG EXPOSURE DURING PREGNANCY [None]
  - PREMATURE BABY [None]
  - PREMATURE SEPARATION OF PLACENTA [None]
